FAERS Safety Report 10418215 (Version 2)
Quarter: 2014Q4

REPORT INFORMATION
  Report Type: Spontaneous
  Country: JP (occurrence: JP)
  Receive Date: 20140829
  Receipt Date: 20141117
  Transmission Date: 20150528
  Serious: Yes (Other)
  Sender: FDA-Public Use
  Company Number: JP-PFIZER INC-2014238777

PATIENT
  Age: 64 Year
  Sex: Male

DRUGS (3)
  1. CAMPTO [Suspect]
     Active Substance: IRINOTECAN
     Indication: GASTRIC CANCER
     Dosage: 150 MG/M2, 1X/DAY
     Route: 041
     Dates: start: 201204
  2. TS-1 [Concomitant]
     Active Substance: GIMERACIL\OTERACIL\TEGAFUR
     Indication: GASTRIC CANCER
     Dosage: 80 MG/M2, 1X/DAY
     Dates: start: 201204
  3. CAMPTO [Suspect]
     Active Substance: IRINOTECAN
     Dosage: 60 MG/M2, 1X/DAY
     Route: 041

REACTIONS (2)
  - Neurotoxicity [Unknown]
  - Diarrhoea [Unknown]
